FAERS Safety Report 4274107-6 (Version None)
Quarter: 2004Q1

REPORT INFORMATION
  Report Type: 
  Country: None (occurrence: None)
  Receive Date: 20040120
  Receipt Date: 20040109
  Transmission Date: 20041129
  Serious: Yes (Congenital Anomaly)
  Sender: FDA-Public Use
  Company Number: GB-GLAXOSMITHKLINE-B0319419A

PATIENT
  Sex: Male

DRUGS (2)
  1. COMBIVIR [Suspect]
     Route: 048
  2. VIRAMUNE [Suspect]
     Route: 048

REACTIONS (7)
  - ABDOMINAL DISTENSION [None]
  - CHORDEE [None]
  - CRYPTORCHISM [None]
  - DRUG EXPOSURE DURING PREGNANCY [None]
  - FOETAL GROWTH RETARDATION [None]
  - HYPOSPADIAS [None]
  - NECROTISING COLITIS [None]
